FAERS Safety Report 17693129 (Version 1)
Quarter: 2020Q2

REPORT INFORMATION
  Report Type: Spontaneous
  Country: US (occurrence: US)
  Receive Date: 20200421
  Receipt Date: 20200421
  Transmission Date: 20200714
  Serious: Yes (Hospitalization)
  Sender: FDA-Public Use
  Company Number: None

PATIENT
  Age: 33 Year
  Sex: Female

DRUGS (21)
  1. HYDROMORPHON [Concomitant]
     Active Substance: HYDROMORPHONE
  2. LEVETIRACETA [Concomitant]
  3. GABAPENTIN. [Concomitant]
     Active Substance: GABAPENTIN
  4. HYDROCO/APAP [Concomitant]
     Active Substance: ACETAMINOPHEN\HYDROCODONE
  5. VALACYCLOVIR [Concomitant]
     Active Substance: VALACYCLOVIR HYDROCHLORIDE
  6. HYDROCHLOROT [Concomitant]
     Active Substance: HYDROCHLOROTHIAZIDE
  7. NYSTATIN. [Concomitant]
     Active Substance: NYSTATIN
  8. KISQALI [Suspect]
     Active Substance: RIBOCICLIB
     Indication: BREAST CANCER FEMALE
     Dosage: ?          OTHER DOSE:3 TABS;?
     Route: 048
     Dates: start: 20200213
  9. METOPROL TAR [Concomitant]
  10. MUPIROCIN. [Concomitant]
     Active Substance: MUPIROCIN
  11. FLUCONAZOLE. [Concomitant]
     Active Substance: FLUCONAZOLE
  12. FUROSEMIDE. [Concomitant]
     Active Substance: FUROSEMIDE
  13. METHOCARBAM [Concomitant]
     Active Substance: METHOCARBAMOL
  14. ALPRAZOLAM. [Concomitant]
     Active Substance: ALPRAZOLAM
  15. CALCITRIOL. [Concomitant]
     Active Substance: CALCITRIOL
  16. KETOCONAZOLE. [Concomitant]
     Active Substance: KETOCONAZOLE
  17. PANTOPRAZOLE [Concomitant]
     Active Substance: PANTOPRAZOLE
  18. SMZ/TMP DS [Concomitant]
     Active Substance: SULFAMETHOXAZOLE\TRIMETHOPRIM
  19. TRAMADOL HCL [Concomitant]
     Active Substance: TRAMADOL HYDROCHLORIDE
  20. DEXAMETHASON [Concomitant]
     Active Substance: DEXAMETHASONE
  21. NMEGESTROL AC [Concomitant]

REACTIONS (1)
  - Hospitalisation [None]

NARRATIVE: CASE EVENT DATE: 20200420
